FAERS Safety Report 8443178-5 (Version None)
Quarter: 2012Q2

REPORT INFORMATION
  Report Type: 
  Country: None (occurrence: None)
  Receive Date: 20120616
  Receipt Date: 20120605
  Transmission Date: 20120825
  Serious: Yes (Hospitalization, Other)
  Sender: FDA-Public Use
  Company Number: US-VERTEX PHARMACEUTICALS INC.-AE-2012-006764

PATIENT
  Sex: Female

DRUGS (3)
  1. PEGASYS [Concomitant]
     Indication: HEPATITIS C
     Dates: start: 20120501, end: 20120529
  2. INCIVEK [Suspect]
     Indication: HEPATITIS C
     Route: 048
     Dates: start: 20120501, end: 20120529
  3. RIBAVIRIN [Concomitant]
     Indication: HEPATITIS C
     Dates: start: 20120501, end: 20120529

REACTIONS (6)
  - NAUSEA [None]
  - BLOOD COUNT ABNORMAL [None]
  - DEEP VEIN THROMBOSIS [None]
  - ANAL PRURITUS [None]
  - CHILLS [None]
  - ANORECTAL DISCOMFORT [None]
